FAERS Safety Report 19151092 (Version 2)
Quarter: 2021Q2

REPORT INFORMATION
  Report Type: Spontaneous
  Country: US (occurrence: US)
  Receive Date: 20210419
  Receipt Date: 20210427
  Transmission Date: 20210717
  Serious: Yes (Death, Other)
  Sender: FDA-Public Use
  Company Number: US-TEVA-2021-US-1900970

PATIENT
  Age: 74 Year
  Sex: Male

DRUGS (5)
  1. VALSARTAN NOVARTIS [Suspect]
     Active Substance: VALSARTAN
     Dosage: 160MG
     Route: 065
     Dates: start: 20050425, end: 20090406
  2. VALSARTAN/HYDROCHLOROTHIAZIDE SANDOZ [Suspect]
     Active Substance: HYDROCHLOROTHIAZIDE\VALSARTAN
     Indication: HYPERTENSION
     Dosage: 80/12.5MG
     Route: 065
     Dates: start: 20090406, end: 20120430
  3. VALSARTAN NOVARTIS [Suspect]
     Active Substance: VALSARTAN
     Indication: HYPERTENSION
     Dosage: 80MG
     Route: 065
     Dates: start: 20040419, end: 20050425
  4. VALSARTAN/HYDROCHLOROTHIAZIDE MCKESSON [Suspect]
     Active Substance: HYDROCHLOROTHIAZIDE\VALSARTAN
     Indication: HYPERTENSION
     Dosage: 80/12.5MG
     Route: 065
     Dates: start: 20120430, end: 20150420
  5. VALSARTAN/HYDROCHLOROTHIAZIDE NOVARTIS [Suspect]
     Active Substance: HYDROCHLOROTHIAZIDE\VALSARTAN
     Indication: HYPERTENSION
     Dosage: 160/12.5MG
     Route: 065

REACTIONS (1)
  - Hepatic cancer [Unknown]
